FAERS Safety Report 14961053 (Version 1)
Quarter: 2018Q2

REPORT INFORMATION
  Report Type: Spontaneous
  Country: US (occurrence: US)
  Receive Date: 20180531
  Receipt Date: 20180531
  Transmission Date: 20180711
  Serious: Yes (Other)
  Sender: FDA-Public Use
  Company Number: US-ASTRAZENECA-2018SE66979

PATIENT
  Sex: Female

DRUGS (6)
  1. SYNTHROID [Concomitant]
     Active Substance: LEVOTHYROXINE SODIUM
  2. AMIODARONE [Concomitant]
     Active Substance: AMIODARONE
  3. NEXIUM [Suspect]
     Active Substance: ESOMEPRAZOLE MAGNESIUM
     Indication: GASTROOESOPHAGEAL REFLUX DISEASE
     Route: 048
     Dates: end: 201802
  4. RIFAMPIN. [Concomitant]
     Active Substance: RIFAMPIN
  5. ANASTROZOLE. [Suspect]
     Active Substance: ANASTROZOLE
     Route: 048
  6. VALIUM [Concomitant]
     Active Substance: DIAZEPAM

REACTIONS (6)
  - Dyspepsia [Not Recovered/Not Resolved]
  - Osteopenia [Unknown]
  - Cough [Not Recovered/Not Resolved]
  - Haemoptysis [Unknown]
  - Gastrooesophageal reflux disease [Not Recovered/Not Resolved]
  - Osteoporosis [Unknown]

NARRATIVE: CASE EVENT DATE: 201802
